FAERS Safety Report 24065156 (Version 1)
Quarter: 2024Q3

REPORT INFORMATION
  Report Type: Spontaneous
  Country: CN (occurrence: CN)
  Receive Date: 20240709
  Receipt Date: 20240709
  Transmission Date: 20241017
  Serious: Yes (Death)
  Sender: MYLAN
  Company Number: CN-MYLANLABS-2024M1064185

PATIENT
  Age: 77 Year
  Sex: Male

DRUGS (14)
  1. ATORVASTATIN [Suspect]
     Active Substance: ATORVASTATIN
     Indication: Immunoglobulin G4 related disease
     Dosage: 20 MILLIGRAM, QD, EVERY NIGHT
     Route: 065
     Dates: start: 2022
  2. ATORVASTATIN [Suspect]
     Active Substance: ATORVASTATIN
     Indication: Coronary artery dilatation
  3. PREDNISONE [Concomitant]
     Active Substance: PREDNISONE
     Indication: Immunoglobulin G4 related disease
     Dosage: 40 MILLIGRAM, QD
     Route: 065
     Dates: start: 2021
  4. PREDNISONE [Concomitant]
     Active Substance: PREDNISONE
     Indication: Coronary artery dilatation
     Dosage: 17.5 MILLIGRAM, QD
     Route: 065
     Dates: start: 2021
  5. PREDNISONE [Concomitant]
     Active Substance: PREDNISONE
     Dosage: 40 MILLIGRAM, QD
     Route: 065
     Dates: start: 2022
  6. ASPIRIN [Concomitant]
     Active Substance: ASPIRIN
     Indication: Immunoglobulin G4 related disease
     Dosage: UNK
     Route: 065
     Dates: start: 2021, end: 2022
  7. ASPIRIN [Concomitant]
     Active Substance: ASPIRIN
     Indication: Coronary artery dilatation
     Dosage: 100 MILLIGRAM, QD
     Route: 065
     Dates: start: 2022
  8. CLOPIDOGREL [Concomitant]
     Active Substance: CLOPIDOGREL BISULFATE
     Indication: Immunoglobulin G4 related disease
     Dosage: 75 MILLIGRAM, QD
     Route: 065
     Dates: start: 2022
  9. CLOPIDOGREL [Concomitant]
     Active Substance: CLOPIDOGREL BISULFATE
     Indication: Coronary artery dilatation
  10. LIDOCAINE [Concomitant]
     Active Substance: LIDOCAINE
     Indication: Resuscitation
     Dosage: UNK
     Route: 065
     Dates: start: 2022
  11. EPINEPHRINE [Concomitant]
     Active Substance: EPINEPHRINE
     Indication: Resuscitation
     Dosage: UNK
     Route: 065
     Dates: start: 2022
  12. CEFTRIAXONE [Concomitant]
     Active Substance: CEFTRIAXONE\CEFTRIAXONE SODIUM
     Indication: Antibiotic therapy
     Dosage: 100 MILLIGRAM, QD
     Route: 065
     Dates: start: 2022
  13. MYCOPHENOLATE MOFETIL [Concomitant]
     Active Substance: MYCOPHENOLATE MOFETIL
     Indication: Immunoglobulin G4 related disease
     Dosage: 0.5 GRAM, BID
     Route: 065
     Dates: start: 2021
  14. MYCOPHENOLATE MOFETIL [Concomitant]
     Active Substance: MYCOPHENOLATE MOFETIL
     Indication: Coronary artery dilatation

REACTIONS (2)
  - Drug ineffective for unapproved indication [Fatal]
  - Off label use [Unknown]

NARRATIVE: CASE EVENT DATE: 20220101
